FAERS Safety Report 5330712-7 (Version None)
Quarter: 2007Q2

REPORT INFORMATION
  Report Type: 
  Country: None (occurrence: None)
  Receive Date: 20070522
  Receipt Date: 20070509
  Transmission Date: 20071010
  Serious: Yes (Other)
  Sender: FDA-Public Use
  Company Number: PHBS2007BR07010

PATIENT
  Age: 71 Year
  Sex: Male
  Weight: 89 kg

DRUGS (3)
  1. ZELMAC [Suspect]
     Indication: DIVERTICULITIS
     Dosage: 6 MG, ONCE/SINGLE
     Route: 048
     Dates: start: 20070409, end: 20070409
  2. SINERGEN [Concomitant]
     Indication: HYPERTENSION
     Dosage: 1 DF, Q12H
     Route: 048
  3. ASPIRIN [Concomitant]
     Indication: CEREBROVASCULAR ACCIDENT PROPHYLAXIS
     Dosage: 100 MG, Q12H
     Route: 048

REACTIONS (3)
  - DIARRHOEA [None]
  - DIZZINESS [None]
  - VERTIGO [None]
